FAERS Safety Report 25703873 (Version 1)
Quarter: 2025Q3

REPORT INFORMATION
  Report Type: Spontaneous
  Country: AU (occurrence: AU)
  Receive Date: 20250820
  Receipt Date: 20250820
  Transmission Date: 20251020
  Serious: Yes (Other)
  Sender: SAMSUNG BIOEPIS
  Company Number: AU-SAMSUNG BIOEPIS-SB-2025-19999

PATIENT
  Sex: Female
  Weight: 70.4 kg

DRUGS (3)
  1. RENFLEXIS [Suspect]
     Active Substance: INFLIXIMAB-ABDA
     Indication: Colitis ulcerative
     Dosage: 10MG/KG DOSING. 100MG VIAL;
  2. RENFLEXIS [Suspect]
     Active Substance: INFLIXIMAB-ABDA
  3. RENFLEXIS [Suspect]
     Active Substance: INFLIXIMAB-ABDA

REACTIONS (2)
  - Colitis ulcerative [Unknown]
  - Faecal calprotectin increased [Unknown]
